FAERS Safety Report 9966789 (Version 1)
Quarter: 2014Q1

REPORT INFORMATION
  Report Type: Report from Study
  Country: US (occurrence: US)
  Receive Date: 20140305
  Receipt Date: 20140305
  Transmission Date: 20141002
  Serious: No
  Sender: FDA-Public Use
  Company Number: US-ABBVIE-13P-163-1120574-00

PATIENT
  Age: 31 Year
  Sex: Female

DRUGS (6)
  1. HUMIRA [Suspect]
     Indication: CROHN^S DISEASE
     Dates: start: 20130609
  2. HUMIRA [Suspect]
     Dates: start: 20130624
  3. HUMIRA [Suspect]
     Dates: start: 20130709
  4. DEPO PROVERA [Concomitant]
     Indication: CONTRACEPTION
  5. VICODIN [Concomitant]
     Indication: PAIN
     Dosage: 7.5 MG 1 TAB AS NEEDED
  6. PERCOCET [Concomitant]
     Indication: PAIN
     Dosage: 5/325 MG 1 TAB AS NEEDED

REACTIONS (4)
  - Wrong technique in drug usage process [Recovered/Resolved]
  - Inappropriate schedule of drug administration [Recovered/Resolved]
  - Crohn^s disease [Recovered/Resolved]
  - Incorrect dose administered [Recovered/Resolved]
